FAERS Safety Report 7555398-2 (Version None)
Quarter: 2011Q2

REPORT INFORMATION
  Report Type: 
  Country: None (occurrence: None)
  Receive Date: 20110617
  Receipt Date: 20110608
  Transmission Date: 20111010
  Serious: Yes (Hospitalization)
  Sender: FDA-Public Use
  Company Number: RO-ASTRAZENECA-2011SE35525

PATIENT
  Age: 69 Year
  Sex: Female

DRUGS (2)
  1. FASLODEX [Suspect]
     Indication: BREAST CANCER
     Route: 030
     Dates: start: 20100101
  2. ZOMETA [Concomitant]
     Route: 042
     Dates: start: 20100101

REACTIONS (1)
  - FEMORAL NECK FRACTURE [None]
